FAERS Safety Report 7054093-6 (Version None)
Quarter: 2010Q4

REPORT INFORMATION
  Report Type: 
  Country: None (occurrence: None)
  Receive Date: 20101020
  Receipt Date: 20100923
  Transmission Date: 20110411
  Serious: Yes (Hospitalization)
  Sender: FDA-Public Use
  Company Number: US-SANOFI-AVENTIS-2010SA055657

PATIENT
  Sex: Male

DRUGS (5)
  1. LANTUS [Suspect]
     Route: 058
  2. AVAPRO [Suspect]
     Route: 065
  3. NOVOLOG [Suspect]
     Route: 065
  4. METFORMIN HCL [Suspect]
     Route: 065
  5. VICTOZA [Suspect]

REACTIONS (4)
  - DIARRHOEA [None]
  - NAUSEA [None]
  - RENAL FAILURE ACUTE [None]
  - VOMITING [None]
